FAERS Safety Report 9994165 (Version 2)
Quarter: 2014Q1

REPORT INFORMATION
  Report Type: Spontaneous
  Country: FR (occurrence: FR)
  Receive Date: 20140310
  Receipt Date: 20140310
  Transmission Date: 20141002
  Serious: Yes (Death, Hospitalization)
  Sender: FDA-Public Use
  Company Number: FR-ROCHE-1333214

PATIENT
  Age: 53 Year
  Sex: Male
  Weight: 55.07 kg

DRUGS (7)
  1. XOLAIR [Suspect]
     Indication: ASTHMA
     Route: 058
  2. ATROVENT [Concomitant]
  3. SERETIDE DISKUS [Concomitant]
  4. SPIRIVA [Concomitant]
  5. BRICANYL [Concomitant]
  6. SOLUPRED (FRANCE) [Concomitant]
  7. OXYGEN [Concomitant]

REACTIONS (3)
  - Status asthmaticus [Fatal]
  - Cardio-respiratory arrest [Fatal]
  - Muscle spasms [Unknown]
